FAERS Safety Report 8513611-9 (Version None)
Quarter: 2012Q3

REPORT INFORMATION
  Report Type: 
  Country: None (occurrence: None)
  Receive Date: 20120717
  Receipt Date: 20120709
  Transmission Date: 20120928
  Serious: No
  Sender: FDA-Public Use
  Company Number: US-PFIZER INC-2012087254

PATIENT
  Sex: Female
  Weight: 65.76 kg

DRUGS (4)
  1. AGGRENOX [Interacting]
     Dosage: 25/200MG, 2X/DAY
     Dates: start: 20120301
  2. LYRICA [Interacting]
     Indication: PAIN
     Dosage: UNK
     Dates: start: 20120101
  3. LORAZEPAM [Suspect]
  4. SEROQUEL [Interacting]
     Dosage: 50 MG, UNK

REACTIONS (2)
  - DRUG INTERACTION [None]
  - DRUG INEFFECTIVE [None]
